FAERS Safety Report 4518199-5 (Version None)
Quarter: 2004Q4

REPORT INFORMATION
  Report Type: 
  Country: None (occurrence: None)
  Receive Date: 20041130
  Receipt Date: 20041118
  Transmission Date: 20050328
  Serious: Yes (Hospitalization)
  Sender: FDA-Public Use
  Company Number: 2004UW23915

PATIENT
  Age: 78 Year
  Sex: Female

DRUGS (4)
  1. CRESTOR [Suspect]
     Dosage: 10 MG QD PO
     Route: 048
  2. ALTACE [Concomitant]
  3. TIAZAC [Concomitant]
  4. CYTOTEC [Concomitant]

REACTIONS (1)
  - TEMPORAL ARTERITIS [None]
